FAERS Safety Report 22356694 (Version 2)
Quarter: 2023Q2

REPORT INFORMATION
  Report Type: Report from Study
  Country: US (occurrence: US)
  Receive Date: 20230523
  Receipt Date: 20230531
  Transmission Date: 20230722
  Serious: Yes (Hospitalization)
  Sender: FDA-Public Use
  Company Number: US-PFIZER INC-US-GBT-019679

PATIENT
  Age: 38 Year
  Sex: Male

DRUGS (8)
  1. VOXELOTOR [Suspect]
     Active Substance: VOXELOTOR
     Indication: Sickle cell disease
     Dosage: 1500 MG, 1X/DAY
     Route: 048
     Dates: start: 20200630, end: 20211112
  2. VOXELOTOR [Suspect]
     Active Substance: VOXELOTOR
     Indication: Anaemia
  3. FOLVITE [Concomitant]
     Active Substance: FOLIC ACID
     Indication: Sickle cell disease
     Dosage: 1 MG, QD
     Route: 048
     Dates: start: 20190613
  4. ROXICODONE [Concomitant]
     Active Substance: OXYCODONE HYDROCHLORIDE
     Indication: Sickle cell disease
     Dosage: 10 MG, Q6H
     Route: 048
     Dates: start: 20210423
  5. DOLOPHINE [Concomitant]
     Active Substance: METHADONE HYDROCHLORIDE
     Indication: Sickle cell disease
     Dosage: 10 MG, TID
     Route: 048
     Dates: start: 20201211
  6. DOLOPHINE [Concomitant]
     Active Substance: METHADONE HYDROCHLORIDE
     Dosage: 5 MG, TID
     Route: 048
     Dates: start: 20210218
  7. HEXAVITAMIN [ASCORBIC ACID;ERGOCALCIFEROL;NICOTINAMIDE;RETINOL ACETATE [Concomitant]
     Indication: Sickle cell disease
     Dosage: 1 TABLET, QD
     Route: 048
     Dates: start: 20181227
  8. SENOKOT [Concomitant]
     Active Substance: SENNOSIDES
     Indication: Sickle cell disease
     Dosage: 8.6 MG, NIGHTLY
     Route: 048
     Dates: start: 20190131

REACTIONS (1)
  - Sickle cell anaemia with crisis [Recovered/Resolved]

NARRATIVE: CASE EVENT DATE: 20211111
